FAERS Safety Report 25130667 (Version 1)
Quarter: 2025Q1

REPORT INFORMATION
  Report Type: Spontaneous
  Country: US (occurrence: US)
  Receive Date: 20250327
  Receipt Date: 20250327
  Transmission Date: 20250409
  Serious: No
  Sender: RECORDATI
  Company Number: US-RECORDATI RARE DISEASE INC.-2024008632

PATIENT

DRUGS (2)
  1. CARBAGLU [Suspect]
     Active Substance: CARGLUMIC ACID
     Indication: Product used for unknown indication
     Dosage: 200 MG, TID (200 MG TABLET)
     Dates: start: 20241011, end: 202410
  2. CARBAGLU [Suspect]
     Active Substance: CARGLUMIC ACID
     Dosage: 200 MG, TID (200 MG TABLET) (REDOSING DOSING DONE AFTER VOMITING)
     Dates: start: 202410

REACTIONS (1)
  - Vomiting [Unknown]

NARRATIVE: CASE EVENT DATE: 20241025
